FAERS Safety Report 12130777 (Version 1)
Quarter: 2016Q1

REPORT INFORMATION
  Report Type: Spontaneous
  Country: US (occurrence: US)
  Receive Date: 20160301
  Receipt Date: 20160301
  Transmission Date: 20160526
  Serious: No
  Sender: FDA-Public Use
  Company Number: US-JNJFOC-20160105454

PATIENT
  Sex: Female
  Weight: 74.84 kg

DRUGS (4)
  1. IMODIUM MULTI-SYMPTOM RELIEF [Suspect]
     Active Substance: DIMETHICONE\LOPERAMIDE HYDROCHLORIDE
     Indication: DIARRHOEA
     Route: 048
  2. MULTIVITAMINS [Concomitant]
     Active Substance: VITAMINS
     Route: 065
  3. IMODIUM MULTI-SYMPTOM RELIEF [Suspect]
     Active Substance: DIMETHICONE\LOPERAMIDE HYDROCHLORIDE
     Indication: DIARRHOEA
     Route: 048
  4. ARMOUR THYROID [Concomitant]
     Active Substance: THYROID, PORCINE
     Indication: THYROIDECTOMY
     Route: 065

REACTIONS (3)
  - Drug ineffective [Unknown]
  - Incorrect dose administered [Unknown]
  - Expired product administered [Unknown]
